FAERS Safety Report 9524691 (Version 1)
Quarter: 2013Q1

REPORT INFORMATION
  Report Type: Spontaneous
  Country: US (occurrence: None)
  Receive Date: 20130305
  Receipt Date: 20130305
  Transmission Date: 20140127
  Serious: Yes (Other)
  Sender: FDA-Public Use
  Company Number: 163-21880-12021853

PATIENT
  Age: 65 Year
  Sex: Male

DRUGS (3)
  1. REVLIMID [Suspect]
     Indication: PLASMA CELL MYELOMA
     Dosage: 25 MG CAPSULE, DAYS 1-14 EVERY 21 DAYS, PO
     Dates: start: 20110317, end: 20120214
  2. DEXAMETHASONE [Concomitant]
  3. BORTEZOMIB [Concomitant]

REACTIONS (1)
  - Pancytopenia [None]
